FAERS Safety Report 23334753 (Version 1)
Quarter: 2023Q4

REPORT INFORMATION
  Report Type: Report from Study
  Country: US (occurrence: None)
  Receive Date: 20231224
  Receipt Date: 20231224
  Transmission Date: 20240109
  Serious: Yes (Hospitalization)
  Sender: FDA-Public Use
  Company Number: 2023A289078

PATIENT
  Sex: Female

DRUGS (1)
  1. TAGRISSO [Suspect]
     Active Substance: OSIMERTINIB
     Indication: Non-small cell lung cancer
     Route: 048
     Dates: start: 20231026

REACTIONS (9)
  - Dyspnoea [Unknown]
  - Pain [Unknown]
  - Pulmonary embolism [Unknown]
  - Thrombosis [Unknown]
  - Fatigue [Unknown]
  - Dysgeusia [Unknown]
  - Nausea [Unknown]
  - Vomiting [Unknown]
  - Insurance issue [Unknown]
